FAERS Safety Report 15751696 (Version 2)
Quarter: 2019Q2

REPORT INFORMATION
  Report Type: Spontaneous
  Country: US (occurrence: US)
  Receive Date: 20181221
  Receipt Date: 20190517
  Transmission Date: 20190711
  Serious: Yes (Other)
  Sender: FDA-Public Use
  Company Number: US-ASTRAZENECA-2018SF66554

PATIENT
  Age: 67 Year
  Sex: Female
  Weight: 89.4 kg

DRUGS (21)
  1. LOSARTAN. [Concomitant]
     Active Substance: LOSARTAN
  2. PRAVASTATIN. [Concomitant]
     Active Substance: PRAVASTATIN
  3. AMLODIPINE [Concomitant]
     Active Substance: AMLODIPINE BESYLATE
  4. NEXIUM [Suspect]
     Active Substance: ESOMEPRAZOLE MAGNESIUM
     Route: 048
     Dates: start: 2010, end: 2015
  5. AMIODARONE [Concomitant]
     Active Substance: AMIODARONE
  6. NEXIUM [Suspect]
     Active Substance: ESOMEPRAZOLE MAGNESIUM
     Dosage: GENERIC
     Route: 065
     Dates: start: 201705
  7. FUROSEMIDE. [Concomitant]
     Active Substance: FUROSEMIDE
  8. ASPIRIN. [Concomitant]
     Active Substance: ASPIRIN
  9. RANITIDINE. [Concomitant]
     Active Substance: RANITIDINE
  10. GLIPIZIDE. [Concomitant]
     Active Substance: GLIPIZIDE
  11. LOSARTAN. [Concomitant]
     Active Substance: LOSARTAN
  12. TUMS [Concomitant]
     Active Substance: CALCIUM CARBONATE
  13. GABAPENTIN. [Concomitant]
     Active Substance: GABAPENTIN
  14. NEXIUM [Suspect]
     Active Substance: ESOMEPRAZOLE MAGNESIUM
     Route: 048
     Dates: start: 201601, end: 201607
  15. METOPROLOL. [Concomitant]
     Active Substance: METOPROLOL
  16. PIOGLITAZONE. [Concomitant]
     Active Substance: PIOGLITAZONE
  17. FAMOTIDINE. [Concomitant]
     Active Substance: FAMOTIDINE
  18. METOPROLOL. [Concomitant]
     Active Substance: METOPROLOL
  19. NEXIUM [Suspect]
     Active Substance: ESOMEPRAZOLE MAGNESIUM
     Dosage: GENERIC
     Route: 065
     Dates: start: 201803
  20. METFORMIN [Concomitant]
     Active Substance: METFORMIN HYDROCHLORIDE
  21. SERTRALINE [Concomitant]
     Active Substance: SERTRALINE HYDROCHLORIDE

REACTIONS (1)
  - Chronic kidney disease [Not Recovered/Not Resolved]

NARRATIVE: CASE EVENT DATE: 2009
